FAERS Safety Report 5108303-2 (Version None)
Quarter: 2006Q3

REPORT INFORMATION
  Report Type: 
  Country: None (occurrence: None)
  Receive Date: 20060914
  Receipt Date: 20060914
  Transmission Date: 20061208
  Serious: Yes (Disabling)
  Sender: FDA-Public Use
  Company Number: None

PATIENT
  Age: 38 Year
  Sex: Female
  Weight: 100.2449 kg

DRUGS (2)
  1. AZITHROMYCIN [Suspect]
     Indication: EAR INFECTION
     Dosage: 250 MG 1 TIME A DAY PO
     Route: 048
     Dates: start: 20060910, end: 20060912
  2. AZITHROMYCIN [Suspect]
     Indication: SINUSITIS
     Dosage: 250 MG 1 TIME A DAY PO
     Route: 048
     Dates: start: 20060910, end: 20060912

REACTIONS (1)
  - URTICARIA GENERALISED [None]
